FAERS Safety Report 8570666-3 (Version None)
Quarter: 2012Q3

REPORT INFORMATION
  Report Type: 
  Country: None (occurrence: None)
  Receive Date: 20120805
  Receipt Date: 20120723
  Transmission Date: 20120928
  Serious: No
  Sender: FDA-Public Use
  Company Number: US-009507513-1207USA009567

PATIENT

DRUGS (3)
  1. KOMBIGLYZE XR [Suspect]
  2. JANUVIA [Suspect]
     Route: 048
  3. METFORMIN HYDROCHLORIDE [Suspect]

REACTIONS (2)
  - NAUSEA [None]
  - VOMITING [None]
